FAERS Safety Report 6165582-0 (Version None)
Quarter: 2009Q2

REPORT INFORMATION
  Report Type: 
  Country: None (occurrence: None)
  Receive Date: 20090423
  Receipt Date: 20090415
  Transmission Date: 20091009
  Serious: Yes (Hospitalization)
  Sender: FDA-Public Use
  Company Number: JP-JNJFOC-20080902818

PATIENT
  Sex: Male
  Weight: 69 kg

DRUGS (7)
  1. TRAMADOL HCL [Suspect]
     Dosage: 1-8 TABLETS
     Route: 048
  2. TRAMADOL HCL [Suspect]
     Indication: PAIN
     Dosage: 4-8 TABLETS
     Route: 048
  3. ADALAT CC [Concomitant]
     Indication: HYPERTENSION
     Route: 048
  4. DIOVAN [Concomitant]
     Indication: HYPERTENSION
     Route: 048
  5. SALOBEL [Concomitant]
     Indication: HYPERURICAEMIA
     Route: 048
  6. HUMALOG [Concomitant]
     Indication: DIABETES MELLITUS
     Route: 058
  7. LANTUS [Concomitant]
     Indication: DIABETES MELLITUS
     Route: 058

REACTIONS (3)
  - LOSS OF CONSCIOUSNESS [None]
  - REFLUX OESOPHAGITIS [None]
  - UPPER GASTROINTESTINAL HAEMORRHAGE [None]
